FAERS Safety Report 19913358 (Version 1)
Quarter: 2021Q4

REPORT INFORMATION
  Report Type: Spontaneous
  Country: GB (occurrence: GB)
  Receive Date: 20211004
  Receipt Date: 20211004
  Transmission Date: 20220303
  Serious: Yes (Life-Threatening, Other)
  Sender: FDA-Public Use
  Company Number: None

PATIENT
  Age: 72 Year
  Sex: Female
  Weight: 77 kg

DRUGS (1)
  1. LANSOPRAZOLE [Suspect]
     Active Substance: LANSOPRAZOLE
     Indication: Abdominal pain
     Dosage: 15 MILLIGRAM DAILY;
     Route: 048
     Dates: start: 20210305, end: 20210306

REACTIONS (2)
  - Headache [Recovered/Resolved]
  - Wrong drug [Unknown]

NARRATIVE: CASE EVENT DATE: 20210305
